FAERS Safety Report 7636102-6 (Version None)
Quarter: 2011Q3

REPORT INFORMATION
  Report Type: 
  Country: None (occurrence: None)
  Receive Date: 20110726
  Receipt Date: 20110720
  Transmission Date: 20111222
  Serious: Yes (Other)
  Sender: FDA-Public Use
  Company Number: BR-GLAXOSMITHKLINE-A0938054A

PATIENT
  Sex: Female

DRUGS (1)
  1. NICOTINE POLACRILEX [Suspect]
     Indication: SMOKING CESSATION THERAPY
     Dosage: 2MG PER DAY
     Route: 002
     Dates: start: 20110714, end: 20110714

REACTIONS (10)
  - FATIGUE [None]
  - PAROSMIA [None]
  - VISION BLURRED [None]
  - OROPHARYNGEAL PAIN [None]
  - HEADACHE [None]
  - PNEUMONIA [None]
  - DRUG ADMINISTRATION ERROR [None]
  - PYREXIA [None]
  - DIZZINESS [None]
  - DYSPNOEA [None]
